FAERS Safety Report 11258068 (Version 1)
Quarter: 2015Q3

REPORT INFORMATION
  Report Type: Spontaneous
  Country: MX (occurrence: MX)
  Receive Date: 20150710
  Receipt Date: 20150710
  Transmission Date: 20151125
  Serious: Yes (Other)
  Sender: FDA-Public Use
  Company Number: PHHY2015MX082705

PATIENT
  Age: 58 Year
  Sex: Male

DRUGS (2)
  1. ZOMETA [Suspect]
     Active Substance: ZOLEDRONIC ACID
     Indication: PRODUCT USED FOR UNKNOWN INDICATION
     Dosage: 4 MG, MONTHLY
     Route: 065
  2. INTERFERON ALFA-2B [Concomitant]
     Active Substance: INTERFERON ALFA-2B
     Indication: PRODUCT USED FOR UNKNOWN INDICATION
     Dosage: 9 MILLION U, ON MONDAY, WEDNESDAY AND FRIDAY
     Route: 065

REACTIONS (7)
  - Haemoglobin decreased [Unknown]
  - Osteonecrosis of jaw [Unknown]
  - Bleeding time shortened [Unknown]
  - Prothrombin time shortened [Unknown]
  - Disease progression [Unknown]
  - Skin lesion [Not Recovered/Not Resolved]
  - Drug intolerance [Unknown]

NARRATIVE: CASE EVENT DATE: 20091105
